FAERS Safety Report 13096396 (Version 1)
Quarter: 2017Q1

REPORT INFORMATION
  Report Type: Spontaneous
  Country: US (occurrence: US)
  Receive Date: 20170106
  Receipt Date: 20170106
  Transmission Date: 20170428
  Serious: Yes (Death)
  Sender: FDA-Public Use
  Company Number: None

PATIENT
  Age: 68 Year
  Sex: Male

DRUGS (1)
  1. DOFETILIDE 25 MG MAYNE PHARMA [Suspect]
     Active Substance: DOFETILIDE
     Route: 048
     Dates: start: 20160315, end: 20161215

REACTIONS (1)
  - Death [None]

NARRATIVE: CASE EVENT DATE: 20161215
